FAERS Safety Report 23205357 (Version 1)
Quarter: 2023Q4

REPORT INFORMATION
  Report Type: Spontaneous
  Country: US (occurrence: US)
  Receive Date: 20231120
  Receipt Date: 20231120
  Transmission Date: 20240110
  Serious: No
  Sender: FDA-Public Use
  Company Number: US-PFIZER INC-PV202300188906

PATIENT
  Age: 59 Year
  Sex: Female

DRUGS (17)
  1. IBRANCE [Suspect]
     Active Substance: PALBOCICLIB
     Indication: Breast cancer
     Dosage: 125 MG, CYCLIC (1 TABLET ONCE A DAY ON DAYS 1-21 EVERY 28 DAY CYCLE-3 WEEKS ON AND 1 WEEK OFF)
     Route: 048
     Dates: start: 20230919
  2. ALBUTEROL SULFATE [Concomitant]
     Active Substance: ALBUTEROL SULFATE
     Dosage: UNK
  3. ALPRAZOLAM [Concomitant]
     Active Substance: ALPRAZOLAM
  4. CALCIUM [Concomitant]
     Active Substance: CALCIUM
  5. LORATADINE [Concomitant]
     Active Substance: LORATADINE
  6. CYMBALTA [Concomitant]
     Active Substance: DULOXETINE HYDROCHLORIDE
  7. FULVESTRANT [Concomitant]
     Active Substance: FULVESTRANT
     Dosage: 250/5ML
  8. KISQALI [Concomitant]
     Active Substance: RIBOCICLIB
     Dosage: 600 DOSE
  9. KISQALI [Concomitant]
     Active Substance: RIBOCICLIB
     Dosage: 200 MG TAB-400MG/ DAY PK
  10. KISQALI [Concomitant]
     Active Substance: RIBOCICLIB
     Dosage: 200 MG TAB-600MG/ DAY PK
  11. LOPERAMIDE [Concomitant]
     Active Substance: LOPERAMIDE
  12. LOSARTAN POTASSIUM [Concomitant]
     Active Substance: LOSARTAN POTASSIUM
  13. MYRBETRIQ [Concomitant]
     Active Substance: MIRABEGRON
  14. ONDANSETRON [Concomitant]
     Active Substance: ONDANSETRON
  15. TRAMADOL HCL [Concomitant]
     Active Substance: TRAMADOL HYDROCHLORIDE
  16. WELCHOL [Concomitant]
     Active Substance: COLESEVELAM HYDROCHLORIDE
  17. XGEVA [Concomitant]
     Active Substance: DENOSUMAB

REACTIONS (1)
  - Infection [Recovered/Resolved]

NARRATIVE: CASE EVENT DATE: 20230101
